FAERS Safety Report 9795094 (Version 1)
Quarter: 2014Q1

REPORT INFORMATION
  Report Type: Report from Study
  Country: US (occurrence: US)
  Receive Date: 20140103
  Receipt Date: 20140103
  Transmission Date: 20141002
  Serious: Yes (Death)
  Sender: FDA-Public Use
  Company Number: US-ROCHE-1326059

PATIENT
  Sex: 0

DRUGS (6)
  1. MYCOPHENOLATE MOFETIL [Suspect]
     Indication: PROPHYLAXIS AGAINST GRAFT VERSUS HOST DISEASE
     Dosage: FROM DAY -2 THROUGH DAYS +60
     Route: 048
  2. FLUDARABINE PHOSPHATE [Suspect]
     Indication: HAEMATOLOGICAL MALIGNANCY
     Dosage: FOR 5 DAYS (DAY-7 THROUGH -3), THE PREPARATIVE REGIMEN
     Route: 042
  3. BUSULFAN [Suspect]
     Indication: HAEMATOLOGICAL MALIGNANCY
     Dosage: X 2 DAYS (DAYS- 4, -3), THE PREPARATIVE REGIMEN
     Route: 042
  4. ANTITHYMOCYTE IMMUNOGLOBULIN [Suspect]
     Indication: HAEMATOLOGICAL MALIGNANCY
     Dosage: MUD PATIENTS ALSO RECEIVED RABBIT ANTITHYMOCYTE GLOBULIN; X 4 DAYS (DAY-4 THROUGH -1)
     Route: 065
  5. TACROLIMUS [Suspect]
     Indication: PROPHYLAXIS AGAINST GRAFT VERSUS HOST DISEASE
     Dosage: STARTING ON DAY 21 TO MAINTAIN LEVELS AT 5-10 NG/ML AND THEN TAPERED AS TOLERATED STARTING DAY +90 F
     Route: 065
  6. METHOTREXATE [Suspect]
     Indication: HAEMATOLOGICAL MALIGNANCY
     Dosage: DAY +1, +3, AND +6 FOR MSD PATIENTS AND DAY +1, +3, +6, AND +11 FOR MUD PATIENTS
     Route: 042

REACTIONS (8)
  - Graft versus host disease [Fatal]
  - Respiratory failure [Fatal]
  - Coagulopathy [Fatal]
  - Renal failure [Fatal]
  - Cerebral ischaemia [Fatal]
  - Post transplant lymphoproliferative disorder [Fatal]
  - Pneumonitis [Fatal]
  - Infection [Fatal]
